FAERS Safety Report 11820486 (Version 1)
Quarter: 2015Q4

REPORT INFORMATION
  Report Type: Spontaneous
  Country: US (occurrence: None)
  Receive Date: 20151209
  Receipt Date: 20151209
  Transmission Date: 20160305
  Serious: No
  Sender: FDA-Public Use
  Company Number: None

PATIENT
  Age: 6 Month
  Sex: Female
  Weight: 74.84 kg

DRUGS (1)
  1. ABREVA [Suspect]
     Active Substance: DOCOSANOL
     Indication: ORAL HERPES
     Dates: start: 20150713, end: 20150715

REACTIONS (3)
  - Oral herpes [None]
  - Drug hypersensitivity [None]
  - Condition aggravated [None]

NARRATIVE: CASE EVENT DATE: 20150713
